FAERS Safety Report 14872180 (Version 1)
Quarter: 2018Q2

REPORT INFORMATION
  Report Type: Spontaneous
  Country: US (occurrence: US)
  Receive Date: 20180509
  Receipt Date: 20180509
  Transmission Date: 20180711
  Serious: Yes (Life-Threatening)
  Sender: FDA-Public Use
  Company Number: US-FRESENIUS KABI-FK201805575

PATIENT
  Age: 59 Year
  Sex: Female

DRUGS (1)
  1. FAT EMULSION NOS [Suspect]
     Active Substance: EGG PHOSPHOLIPIDS\SAFFLOWER OIL\SOYBEAN OIL
     Indication: SYSTEMIC TOXICITY
     Route: 042

REACTIONS (3)
  - Ventricular arrhythmia [Unknown]
  - Product use in unapproved indication [Unknown]
  - Coronary artery embolism [Unknown]
